FAERS Safety Report 19031232 (Version 1)
Quarter: 2021Q1

REPORT INFORMATION
  Report Type: Spontaneous
  Country: US (occurrence: US)
  Receive Date: 20210319
  Receipt Date: 20210319
  Transmission Date: 20210420
  Serious: No
  Sender: FDA-Public Use
  Company Number: None

PATIENT
  Age: 36 Year
  Sex: Female
  Weight: 54.4 kg

DRUGS (2)
  1. FERRLICIT IN NORMAL SALINE [Concomitant]
     Dates: start: 20210319, end: 20210319
  2. FERRLECIT [Suspect]
     Active Substance: SODIUM FERRIC GLUCONATE COMPLEX
     Indication: IRON DEFICIENCY
     Dosage: ?          OTHER FREQUENCY:ONE A WEEK;?
     Route: 041
     Dates: start: 20210319, end: 20210319

REACTIONS (5)
  - Anxiety [None]
  - Peripheral swelling [None]
  - Blood pressure increased [None]
  - Chills [None]
  - Chest pain [None]

NARRATIVE: CASE EVENT DATE: 20210319
